FAERS Safety Report 5952705-9 (Version None)
Quarter: 2008Q4

REPORT INFORMATION
  Report Type: 
  Country: None (occurrence: None)
  Receive Date: 20081114
  Receipt Date: 20080911
  Transmission Date: 20090506
  Serious: Yes (Other)
  Sender: FDA-Public Use
  Company Number: MX-BAYER-200820559LA

PATIENT
  Age: 39 Year
  Sex: Female

DRUGS (2)
  1. MAGNEVIST [Suspect]
     Indication: NUCLEAR MAGNETIC RESONANCE IMAGING
     Route: 042
     Dates: start: 20080911, end: 20080911
  2. INTERFERON BETA [Concomitant]
     Indication: MULTIPLE SCLEROSIS
     Route: 058
     Dates: start: 20080601

REACTIONS (5)
  - ASTHENIA [None]
  - DIZZINESS [None]
  - IRRITABILITY [None]
  - NAUSEA [None]
  - VOMITING [None]
